FAERS Safety Report 8604561-8 (Version None)
Quarter: 2012Q3

REPORT INFORMATION
  Report Type: 
  Country: None (occurrence: None)
  Receive Date: 20120806
  Receipt Date: 20120806
  Transmission Date: 20120928
  Serious: Yes (Other)
  Sender: FDA-Public Use
  Company Number: None

PATIENT
  Age: 77 Year
  Sex: Male

DRUGS (1)
  1. AFINITOR [Suspect]
     Dosage: 10 MG DAILY PO
     Route: 048
     Dates: start: 20120224, end: 20120803

REACTIONS (2)
  - HYPOAESTHESIA [None]
  - ONYCHOCLASIS [None]
